FAERS Safety Report 18076822 (Version 3)
Quarter: 2020Q4

REPORT INFORMATION
  Report Type: Report from Study
  Country: CA (occurrence: CA)
  Receive Date: 20200727
  Receipt Date: 20201102
  Transmission Date: 20210113
  Serious: Yes (Hospitalization)
  Sender: FDA-Public Use
  Company Number: CA-JNJFOC-20200604065

PATIENT
  Age: 71 Year
  Sex: Male

DRUGS (2)
  1. STELARA [Suspect]
     Active Substance: USTEKINUMAB
     Route: 058
  2. STELARA [Suspect]
     Active Substance: USTEKINUMAB
     Indication: CROHN^S DISEASE
     Route: 058
     Dates: start: 20170316, end: 20200727

REACTIONS (7)
  - Off label use [Unknown]
  - Product use issue [Unknown]
  - Urinary tract infection [Recovering/Resolving]
  - Renal abscess [Recovering/Resolving]
  - Crohn^s disease [Unknown]
  - Intestinal resection [Unknown]
  - Intestinal fistula [Recovering/Resolving]

NARRATIVE: CASE EVENT DATE: 20200528
